APPROVED DRUG PRODUCT: GLYCOPYRROLATE
Active Ingredient: GLYCOPYRROLATE
Strength: 1.5MG
Dosage Form/Route: TABLET;ORAL
Application: A091522 | Product #001
Applicant: LGM PHARMA SOLUTIONS LLC
Approved: Mar 12, 2012 | RLD: No | RS: Yes | Type: RX